FAERS Safety Report 13368737 (Version 1)
Quarter: 2017Q1

REPORT INFORMATION
  Report Type: Report from Study
  Country: AU (occurrence: AU)
  Receive Date: 20170324
  Receipt Date: 20170324
  Transmission Date: 20170429
  Serious: Yes (Hospitalization, Other)
  Sender: FDA-Public Use
  Company Number: AU-REGENERON PHARMACEUTICALS, INC.-2017-13607

PATIENT

DRUGS (1)
  1. EYLEA [Suspect]
     Active Substance: AFLIBERCEPT
     Indication: RETINAL VEIN OCCLUSION
     Dosage: UNK
     Route: 031
     Dates: start: 20140101

REACTIONS (4)
  - Musculoskeletal pain [Unknown]
  - Circulatory collapse [Recovered/Resolved]
  - Accident [Unknown]
  - Musculoskeletal injury [Unknown]

NARRATIVE: CASE EVENT DATE: 201607
